FAERS Safety Report 21294445 (Version 3)
Quarter: 2022Q4

REPORT INFORMATION
  Report Type: Report from Study
  Country: ES (occurrence: ES)
  Receive Date: 20220905
  Receipt Date: 20221117
  Transmission Date: 20230113
  Serious: Yes (Other)
  Sender: FDA-Public Use
  Company Number: ES-TEVA-2022-ES-2060918

PATIENT
  Age: 44 Year
  Sex: Female

DRUGS (1)
  1. COPAXONE [Suspect]
     Active Substance: GLATIRAMER ACETATE
     Indication: Multiple sclerosis
     Dosage: 40 MG/ML
     Route: 058
     Dates: start: 20220722, end: 20220727

REACTIONS (30)
  - Hallucination, visual [Recovering/Resolving]
  - Hallucination, auditory [Recovering/Resolving]
  - Multiple sclerosis relapse [Recovering/Resolving]
  - Poor quality sleep [Recovering/Resolving]
  - Insomnia [Recovering/Resolving]
  - Feeling abnormal [Recovered/Resolved]
  - Mood swings [Recovered/Resolved]
  - Abdominal pain upper [Recovered/Resolved]
  - Diarrhoea [Recovering/Resolving]
  - Eructation [Recovering/Resolving]
  - Frequent bowel movements [Recovered/Resolved]
  - Dizziness [Recovered/Resolved]
  - Dyspepsia [Recovered/Resolved]
  - Constipation [Recovered/Resolved]
  - Fatigue [Recovered/Resolved]
  - Abnormal dreams [Recovering/Resolving]
  - Speech disorder [Recovered/Resolved]
  - Disturbance in attention [Recovered/Resolved]
  - Tinnitus [Recovering/Resolving]
  - Vomiting [Recovered/Resolved]
  - Nausea [Recovered/Resolved]
  - Retching [Recovered/Resolved]
  - Muscle tightness [Recovered/Resolved]
  - Oral pain [Recovering/Resolving]
  - Pyrexia [Recovering/Resolving]
  - Hyperhidrosis [Recovered/Resolved]
  - Asthenia [Recovered/Resolved]
  - Dyspepsia [Recovering/Resolving]
  - Abdominal distension [Recovering/Resolving]
  - Abnormal faeces [Recovering/Resolving]

NARRATIVE: CASE EVENT DATE: 20220701
